FAERS Safety Report 22114797 (Version 1)
Quarter: 2023Q1

REPORT INFORMATION
  Report Type: Spontaneous
  Country: US (occurrence: None)
  Receive Date: 20230318
  Receipt Date: 20230318
  Transmission Date: 20230417
  Serious: Yes (Disabling)
  Sender: FDA-Public Use
  Company Number: None

PATIENT
  Sex: Female
  Weight: 61.23 kg

DRUGS (6)
  1. LEVOTHYROXINE [Concomitant]
     Active Substance: LEVOTHYROXINE
  2. TRAMADOL [Concomitant]
     Active Substance: TRAMADOL
  3. GABAPENTIN [Concomitant]
     Active Substance: GABAPENTIN
  4. ESCITALOPRAM [Concomitant]
     Active Substance: ESCITALOPRAM OXALATE
  5. VITAMINS [Concomitant]
     Active Substance: VITAMINS
  6. SOMA [Suspect]
     Active Substance: CARISOPRODOL

REACTIONS (5)
  - Malocclusion [None]
  - Tooth disorder [None]
  - Economic problem [None]
  - Mastication disorder [None]
  - Product complaint [None]
